FAERS Safety Report 5116941-6 (Version None)
Quarter: 2006Q3

REPORT INFORMATION
  Report Type: 
  Country: None (occurrence: None)
  Receive Date: 20060925
  Receipt Date: 20060908
  Transmission Date: 20061208
  Serious: Yes (Life-Threatening, Hospitalization)
  Sender: FDA-Public Use
  Company Number: S06-DEN-03810-01

PATIENT
  Sex: Male

DRUGS (4)
  1. AKARIN (CITALOPRAM) [Suspect]
     Indication: DEPRESSION
     Dates: start: 20060210, end: 20060507
  2. NORVASC [Concomitant]
  3. WARFARIN SODIUM [Concomitant]
  4. CENTYL (BENDROFLUMETHIAZIDE) [Concomitant]

REACTIONS (2)
  - NEUTROPHIL COUNT DECREASED [None]
  - WHITE BLOOD CELL COUNT DECREASED [None]
